FAERS Safety Report 14013212 (Version 1)
Quarter: 2017Q3

REPORT INFORMATION
  Report Type: Spontaneous
  Country: IT (occurrence: IT)
  Receive Date: 20170926
  Receipt Date: 20170926
  Transmission Date: 20171128
  Serious: Yes (Other)
  Sender: FDA-Public Use
  Company Number: IT-ASTRAZENECA-2017SE86334

PATIENT
  Age: 22280 Day
  Sex: Female

DRUGS (3)
  1. PROVISACOR [Suspect]
     Active Substance: ROSUVASTATIN
     Indication: DISEASE RISK FACTOR
     Route: 048
     Dates: start: 20131115, end: 20140320
  2. VYTORIN [Suspect]
     Active Substance: EZETIMIBE\SIMVASTATIN
     Indication: TYPE IIA HYPERLIPIDAEMIA
     Route: 048
     Dates: start: 20151222, end: 20160107
  3. PROVISACOR [Suspect]
     Active Substance: ROSUVASTATIN
     Indication: TYPE IIA HYPERLIPIDAEMIA
     Route: 048
     Dates: start: 20131115, end: 20140320

REACTIONS (2)
  - Myalgia [Unknown]
  - Gait disturbance [Unknown]

NARRATIVE: CASE EVENT DATE: 20160107
